FAERS Safety Report 8421087-5 (Version None)
Quarter: 2012Q2

REPORT INFORMATION
  Report Type: 
  Country: None (occurrence: None)
  Receive Date: 20120608
  Receipt Date: 20120529
  Transmission Date: 20120825
  Serious: Yes (Other)
  Sender: FDA-Public Use
  Company Number: US-PERRIGO-12US004757

PATIENT
  Sex: Male
  Weight: 72.562 kg

DRUGS (1)
  1. CETIRIZINE HCL [Suspect]
     Indication: SEASONAL ALLERGY
     Dosage: 10 MG, QD
     Route: 048
     Dates: start: 20120516, end: 20120517

REACTIONS (5)
  - RASH PRURITIC [None]
  - EYELID OEDEMA [None]
  - URTICARIA [None]
  - BLISTER [None]
  - ERYTHEMA [None]
